FAERS Safety Report 7295121-2 (Version None)
Quarter: 2011Q1

REPORT INFORMATION
  Report Type: 
  Country: None (occurrence: None)
  Receive Date: 20110203
  Receipt Date: 20110118
  Transmission Date: 20110831
  Serious: Yes (Death)
  Sender: FDA-Public Use
  Company Number: B0694888A

PATIENT
  Age: 19 Year
  Sex: Male

DRUGS (2)
  1. LAMOTRIGINE [Suspect]
     Dosage: /ORAL
     Route: 048
  2. ACTIVATED-CHARCOAL (FORMULATION UNIKNOWN) (GENERIC) (ACTIVATED CHARCOA [Suspect]
     Dosage: /ORAL
     Route: 048

REACTIONS (1)
  - COMPLETED SUICIDE [None]
